FAERS Safety Report 7739262-1 (Version None)
Quarter: 2011Q3

REPORT INFORMATION
  Report Type: 
  Country: None (occurrence: None)
  Receive Date: 20110909
  Receipt Date: 20100723
  Transmission Date: 20111222
  Serious: No
  Sender: FDA-Public Use
  Company Number: US-BAYER-201031227NA

PATIENT
  Age: 43 Year
  Sex: Female

DRUGS (3)
  1. LOESTRIN 1.5/30 [Concomitant]
     Indication: MOOD SWINGS
     Dosage: UNK
     Dates: start: 20100619, end: 20100720
  2. MIRENA [Suspect]
     Indication: MENORRHAGIA
     Dosage: 20 MCG/24HR, CONT
     Route: 015
     Dates: start: 20100719
  3. CIPROFLOXACIN [Concomitant]
     Dates: start: 20100701

REACTIONS (9)
  - ABDOMINAL PAIN LOWER [None]
  - MOOD SWINGS [None]
  - DEVICE DISLOCATION [None]
  - VAGINAL DISCHARGE [None]
  - MENORRHAGIA [None]
  - DEPRESSED MOOD [None]
  - MENSTRUAL DISORDER [None]
  - POST PROCEDURAL HAEMORRHAGE [None]
  - CYSTITIS [None]
